FAERS Safety Report 5103274-7 (Version None)
Quarter: 2006Q3

REPORT INFORMATION
  Report Type: 
  Country: None (occurrence: None)
  Receive Date: 20060908
  Receipt Date: 20060824
  Transmission Date: 20061208
  Serious: Yes (Death)
  Sender: FDA-Public Use
  Company Number: 2006AL002505

PATIENT
  Age: 63 Year
  Sex: Female

DRUGS (9)
  1. CITALOPRAM HYDROBROMIDE [Suspect]
  2. OMEPRAZOLE [Concomitant]
  3. PERINDOPRIL ERBUMINE [Concomitant]
  4. ADIZEM-SR [Concomitant]
  5. BECOTIDE [Concomitant]
  6. FUROSEMIDE [Concomitant]
  7. ALBUTEROL SPIROS [Concomitant]
  8. SENNA [Concomitant]
  9. VITAMIN B COMPLEX CAP [Concomitant]

REACTIONS (1)
  - LARYNGEAL OEDEMA [None]
